FAERS Safety Report 21592048 (Version 1)
Quarter: 2022Q4

REPORT INFORMATION
  Report Type: Spontaneous
  Country: US (occurrence: None)
  Receive Date: 20221112
  Receipt Date: 20221112
  Transmission Date: 20230113
  Serious: No
  Sender: FDA-Public Use
  Company Number: None

PATIENT
  Age: 17 Year
  Sex: Male

DRUGS (2)
  1. TRIKAFTA [Suspect]
     Active Substance: ELEXACAFTOR\IVACAFTOR\TEZACAFTOR
     Indication: Cystic fibrosis
  2. Pulmazyme [Concomitant]

REACTIONS (3)
  - Hordeolum [None]
  - Acne [None]
  - Blepharitis [None]

NARRATIVE: CASE EVENT DATE: 20221112
